FAERS Safety Report 24617023 (Version 1)
Quarter: 2024Q4

REPORT INFORMATION
  Report Type: Spontaneous
  Country: DE (occurrence: DE)
  Receive Date: 20241114
  Receipt Date: 20241114
  Transmission Date: 20250115
  Serious: Yes (Other)
  Sender: ROCHE
  Company Number: None

PATIENT
  Age: 60 Year
  Sex: Male

DRUGS (8)
  1. OBINUTUZUMAB [Suspect]
     Active Substance: OBINUTUZUMAB
     Indication: Leukopenia
     Route: 065
     Dates: start: 202401
  2. OBINUTUZUMAB [Suspect]
     Active Substance: OBINUTUZUMAB
     Indication: Thrombocytopenia
  3. VENETOCLAX [Suspect]
     Active Substance: VENETOCLAX
     Indication: Leukopenia
     Route: 048
     Dates: start: 202401
  4. VENETOCLAX [Suspect]
     Active Substance: VENETOCLAX
     Indication: Thrombocytopenia
     Route: 048
     Dates: start: 202402
  5. VENETOCLAX [Suspect]
     Active Substance: VENETOCLAX
     Route: 048
     Dates: start: 202405
  6. CARBIDOPA\LEVODOPA [Suspect]
     Active Substance: CARBIDOPA\LEVODOPA
     Indication: Parkinson^s disease
     Route: 065
  7. SAFINAMIDE [Concomitant]
     Active Substance: SAFINAMIDE
     Indication: Parkinson^s disease
  8. PRAMIPEXOLE [Concomitant]
     Active Substance: PRAMIPEXOLE\PRAMIPEXOLE DIHYDROCHLORIDE
     Indication: Parkinson^s disease

REACTIONS (16)
  - Thrombocytopenia [Unknown]
  - Eczema [Unknown]
  - Disease progression [Unknown]
  - Pneumonia [Unknown]
  - Anaemia [Unknown]
  - Neutropenia [Unknown]
  - Chronic lymphocytic leukaemia [Unknown]
  - Vena cava thrombosis [Unknown]
  - Leukopenia [Unknown]
  - Peripheral swelling [Unknown]
  - Acute myeloid leukaemia [Unknown]
  - Tumour lysis syndrome [Unknown]
  - Cytopenia [Unknown]
  - Pain [Unknown]
  - Skin disorder [Unknown]
  - Superinfection bacterial [Unknown]

NARRATIVE: CASE EVENT DATE: 20240601
